FAERS Safety Report 23405356 (Version 1)
Quarter: 2024Q1

REPORT INFORMATION
  Report Type: Spontaneous
  Country: US (occurrence: None)
  Receive Date: 20240112
  Receipt Date: 20240112
  Transmission Date: 20240410
  Serious: No
  Sender: FDA-Public Use
  Company Number: None

PATIENT
  Age: 66 Year
  Sex: Male
  Weight: 65.7 kg

DRUGS (7)
  1. LUMRYZ [Suspect]
     Active Substance: SODIUM OXYBATE
     Indication: Narcolepsy
     Dosage: OTHER QUANTITY : 1 PACKET;?FREQUENCY : AT BEDTIME;?
     Route: 048
     Dates: start: 20231206, end: 20240111
  2. WAKIX [Concomitant]
     Active Substance: PITOLISANT HYDROCHLORIDE
  3. MINOXIDIL [Concomitant]
     Active Substance: MINOXIDIL
  4. Cynanocobalamin [Concomitant]
  5. TESTOSTERONE [Concomitant]
     Active Substance: TESTOSTERONE
  6. VITAMIN D3 [Concomitant]
     Active Substance: CHOLECALCIFEROL
  7. IRON [Concomitant]
     Active Substance: IRON

REACTIONS (3)
  - Confusional state [None]
  - Dissociation [None]
  - Altered state of consciousness [None]

NARRATIVE: CASE EVENT DATE: 20240110
